FAERS Safety Report 11031276 (Version 2)
Quarter: 2015Q2

REPORT INFORMATION
  Report Type: Report from Study
  Country: BR (occurrence: BR)
  Receive Date: 20150415
  Receipt Date: 20150420
  Transmission Date: 20150821
  Serious: Yes (Hospitalization, Other)
  Sender: FDA-Public Use
  Company Number: BR-ABBVIE-15K-020-1345953-00

PATIENT
  Age: 29 Year
  Sex: Female
  Weight: 40 kg

DRUGS (10)
  1. CIPROFLOXACIN. [Concomitant]
     Active Substance: CIPROFLOXACIN
     Indication: INFECTION
     Route: 048
     Dates: start: 2012
  2. TRAMAL [Concomitant]
     Active Substance: TRAMADOL
     Indication: PAIN
     Dosage: 1 TABLET AS NEEDED
     Route: 048
  3. HUMIRA [Suspect]
     Active Substance: ADALIMUMAB
     Indication: CROHN^S DISEASE
     Dosage: INDUCTION DOSE
     Route: 058
     Dates: start: 20090210, end: 20090210
  4. PHENYTOIN. [Concomitant]
     Active Substance: PHENYTOIN
     Indication: SEIZURE
     Route: 048
  5. ATROVERAN [Concomitant]
     Indication: ABDOMINAL PAIN
     Route: 048
  6. VITAMIN B COMPLEX [Concomitant]
     Active Substance: CYANOCOBALAMIN\DEXPANTHENOL\NIACINAMIDE\PYRIDOXINE HYDROCHLORIDE\RIBOFLAVIN 5^-PHOSPHATE SODIUM\THIAMINE HYDROCHLORIDE\VITAMIN B COMPLEX
     Indication: ANAEMIA
     Route: 048
  7. HUMIRA [Suspect]
     Active Substance: ADALIMUMAB
     Route: 058
  8. PHENOBARBITAL. [Concomitant]
     Active Substance: PHENOBARBITAL
     Indication: CONVULSION PROPHYLAXIS
     Route: 048
  9. FERROUS SULFATE [Concomitant]
     Active Substance: FERROUS SULFATE\FERROUS SULFATE, DRIED
     Indication: ANAEMIA
     Route: 048
  10. CARBAMAZEPIN [Concomitant]
     Active Substance: CARBAMAZEPINE
     Indication: SEIZURE
     Route: 048
     Dates: start: 1991

REACTIONS (19)
  - Wound [Unknown]
  - Mass [Recovering/Resolving]
  - Purulent discharge [Recovering/Resolving]
  - Skin wound [Unknown]
  - Weight increased [Unknown]
  - Purulent discharge [Unknown]
  - Rheumatic disorder [Unknown]
  - Incorrect product storage [Unknown]
  - Arthropod bite [Unknown]
  - Arthralgia [Not Recovered/Not Resolved]
  - Drug ineffective [Unknown]
  - Skin exfoliation [Unknown]
  - Crohn^s disease [Recovering/Resolving]
  - Rectal haemorrhage [Not Recovered/Not Resolved]
  - Malaise [Recovering/Resolving]
  - Inflammation [Not Recovered/Not Resolved]
  - Arthritis [Not Recovered/Not Resolved]
  - Axillary pain [Not Recovered/Not Resolved]
  - Leishmaniasis [Recovering/Resolving]

NARRATIVE: CASE EVENT DATE: 2010
